FAERS Safety Report 7008544-3 (Version None)
Quarter: 2010Q3

REPORT INFORMATION
  Report Type: 
  Country: None (occurrence: None)
  Receive Date: 20100922
  Receipt Date: 20100915
  Transmission Date: 20110219
  Serious: No
  Sender: FDA-Public Use
  Company Number: US-PFIZER INC-2010117613

PATIENT
  Sex: Female
  Weight: 66.213 kg

DRUGS (4)
  1. ESTRING [Suspect]
     Indication: OESTROGEN REPLACEMENT THERAPY
     Dosage: 2 MG, UNK
     Route: 067
     Dates: start: 20070101
  2. ESTRING [Suspect]
     Indication: VULVOVAGINAL DRYNESS
  3. ESTRING [Suspect]
     Indication: HOT FLUSH
  4. ESTRING [Suspect]
     Indication: PELVIC DISCOMFORT

REACTIONS (1)
  - DRUG INEFFECTIVE [None]
